FAERS Safety Report 12943377 (Version 24)
Quarter: 2020Q1

REPORT INFORMATION
  Report Type: Spontaneous
  Country: BR (occurrence: BR)
  Receive Date: 20161115
  Receipt Date: 20200317
  Transmission Date: 20200409
  Serious: Yes (Hospitalization, Other)
  Sender: FDA-Public Use
  Company Number: BR-GLAXOSMITHKLINE-BR2015GSK075816

PATIENT
  Sex: Female
  Weight: 60 kg

DRUGS (6)
  1. HYDROXYCHLOROQUINE [Concomitant]
     Active Substance: HYDROXYCHLOROQUINE
     Indication: PRODUCT USED FOR UNKNOWN INDICATION
     Dosage: 400 MG, UNK
  2. IBUPROFEN. [Concomitant]
     Active Substance: IBUPROFEN
     Indication: PRODUCT USED FOR UNKNOWN INDICATION
     Dosage: UNK
  3. PREDNISONE. [Concomitant]
     Active Substance: PREDNISONE
     Indication: PRODUCT USED FOR UNKNOWN INDICATION
     Dosage: 2.5 MG, UNK
  4. PREDNISONE. [Concomitant]
     Active Substance: PREDNISONE
     Dosage: 4 MG, QD
  5. BENLYSTA [Suspect]
     Active Substance: BELIMUMAB
     Indication: SYSTEMIC LUPUS ERYTHEMATOSUS
     Dosage: 600 MG, UNK
     Route: 042
     Dates: start: 20150527
  6. AZATHIOPRINE. [Concomitant]
     Active Substance: AZATHIOPRINE
     Indication: PRODUCT USED FOR UNKNOWN INDICATION
     Dosage: 3 DF, UNK

REACTIONS (25)
  - Palpitations [Unknown]
  - Muscular weakness [Unknown]
  - Laboratory test abnormal [Unknown]
  - Diarrhoea [Unknown]
  - Tooth fracture [Unknown]
  - Inappropriate schedule of product administration [Recovered/Resolved]
  - Tooth extraction [Unknown]
  - Therapeutic response unexpected [Unknown]
  - Underdose [Not Recovered/Not Resolved]
  - Circumstance or information capable of leading to medication error [Unknown]
  - Immunodeficiency [Not Recovered/Not Resolved]
  - Tracheitis [Recovered/Resolved]
  - Fatigue [Unknown]
  - Product dose omission [Not Recovered/Not Resolved]
  - Pneumonia [Recovered/Resolved]
  - Lung disorder [Unknown]
  - Weight decreased [Unknown]
  - Dental implantation [Unknown]
  - Product availability issue [Unknown]
  - Overdose [Not Recovered/Not Resolved]
  - Bacterial diarrhoea [Unknown]
  - Respiratory disorder [Unknown]
  - Inflammation [Unknown]
  - Nasopharyngitis [Unknown]
  - Nausea [Unknown]
